FAERS Safety Report 14305043 (Version 1)
Quarter: 2017Q4

REPORT INFORMATION
  Report Type: Spontaneous
  Country: JP (occurrence: JP)
  Receive Date: 20171219
  Receipt Date: 20171219
  Transmission Date: 20180321
  Serious: Yes (Hospitalization, Other)
  Sender: FDA-Public Use
  Company Number: JP-OTSUKA-006936

PATIENT
  Age: 68 Year
  Sex: Female
  Weight: 58.5 kg

DRUGS (19)
  1. RISPERDAL [Suspect]
     Active Substance: RISPERIDONE
     Indication: SCHIZOAFFECTIVE DISORDER
     Dosage: 4 MG, BID
     Route: 048
     Dates: end: 20090618
  2. AMOBAN [Suspect]
     Active Substance: ZOPICLONE
     Dosage: 15 MG, QD
     Route: 048
     Dates: start: 20090616, end: 20090616
  3. AMOBAN [Suspect]
     Active Substance: ZOPICLONE
     Dosage: 15 MG, QD
     Route: 048
     Dates: start: 20090618, end: 20090619
  4. ROHYPNOL [Suspect]
     Active Substance: FLUNITRAZEPAM
     Dosage: 1 MG, QD
     Route: 048
     Dates: start: 20090618, end: 20090619
  5. DEPAS [Suspect]
     Active Substance: ETIZOLAM
     Dosage: 1 MG, QD
     Route: 048
     Dates: start: 20090618
  6. ROHYPNOL [Suspect]
     Active Substance: FLUNITRAZEPAM
     Indication: INSOMNIA
     Dosage: 1 MG, QD
     Route: 048
     Dates: end: 20090616
  7. DEPAS [Suspect]
     Active Substance: ETIZOLAM
     Dosage: 1 MG, BID
     Route: 048
     Dates: start: 20090617, end: 20090617
  8. AMOBAN [Suspect]
     Active Substance: ZOPICLONE
     Indication: INSOMNIA
     Dosage: 7.5 MG, QD
     Route: 048
     Dates: start: 20090602, end: 20090615
  9. RISPERDAL [Suspect]
     Active Substance: RISPERIDONE
     Dosage: 2 MG, QD
     Route: 048
     Dates: start: 20090620, end: 20090624
  10. RISPERDAL [Suspect]
     Active Substance: RISPERIDONE
     Dosage: 3 MG, QD
     Route: 048
     Dates: start: 20090625
  11. ROHYPNOL [Suspect]
     Active Substance: FLUNITRAZEPAM
     Dosage: 1 MG, BID
     Route: 048
     Dates: start: 20090617, end: 20090617
  12. DEPAS [Suspect]
     Active Substance: ETIZOLAM
     Indication: INSOMNIA
     Dosage: 1 MG, QD
     Route: 048
     Dates: end: 20090616
  13. FLUNITRAZEPAM [Suspect]
     Active Substance: FLUNITRAZEPAM
     Indication: INSOMNIA
     Dosage: STRNGTH:1MG TAB  STARTED BEFORE 12JUN09  UNK-16JUN09-QD  17JUN09(1D)-BID  18-19JUN09(2D)-QD
     Route: 048
     Dates: end: 20090619
  14. RISPERIDONE. [Suspect]
     Active Substance: RISPERIDONE
     Indication: SCHIZOAFFECTIVE DISORDER
     Dosage: STRGTH:1MG TAB  UNK-18JUN09(INTRPTD):BID  20-24JUN09:2MG,QD,5DY  25JUN09-ONG:3MG,QD
     Route: 048
     Dates: start: 20090612
  15. MICARDIS [Concomitant]
     Active Substance: TELMISARTAN
     Dosage: 40 MG, QD
     Route: 048
  16. ABILIFY [Suspect]
     Active Substance: ARIPIPRAZOLE
     Indication: SCHIZOAFFECTIVE DISORDER
     Dosage: 12 MG, QD
     Route: 048
     Dates: start: 20090616, end: 20090618
  17. AMOBAN [Suspect]
     Active Substance: ZOPICLONE
     Dosage: 15 MG, BID
     Route: 048
     Dates: start: 20090617, end: 20090617
  18. AMLODIN [Concomitant]
     Active Substance: AMLODIPINE BESYLATE
     Dosage: 2.5 MG, QD
     Route: 048
  19. ZOPICLONE [Suspect]
     Active Substance: ZOPICLONE
     Indication: INSOMNIA
     Dosage: STRGTH:7.5MG TAB    7.5MG/D-02-15JUN09,14DYS;   15MG/D-16JUN09(1D),17JUN09(1D),18-19JUN09(2D)
     Route: 048
     Dates: start: 20090602, end: 20090619

REACTIONS (5)
  - Blood creatine phosphokinase increased [Recovered/Resolved]
  - Acute respiratory failure [Recovered/Resolved]
  - Hepatic function abnormal [Recovered/Resolved]
  - Myoglobinuria [Recovered/Resolved]
  - Acute kidney injury [Recovered/Resolved]

NARRATIVE: CASE EVENT DATE: 20090619
